FAERS Safety Report 23090328 (Version 2)
Quarter: 2024Q3

REPORT INFORMATION
  Report Type: Spontaneous
  Country: CZ (occurrence: CZ)
  Receive Date: 20231020
  Receipt Date: 20240801
  Transmission Date: 20241017
  Serious: Yes (Other)
  Sender: NOVARTIS
  Company Number: CZ-002147023-NVSC2023CZ225675

PATIENT
  Age: 37 Year
  Sex: Female

DRUGS (2)
  1. EVEROLIMUS [Suspect]
     Active Substance: EVEROLIMUS
     Indication: Renal hamartoma
     Dosage: 10 MG, QD
     Route: 048
     Dates: start: 202211, end: 202211
  2. EVEROLIMUS [Suspect]
     Active Substance: EVEROLIMUS
     Indication: Acute myeloid leukaemia
     Dosage: 5 MG, QD
     Route: 048
     Dates: end: 202310

REACTIONS (2)
  - Stomatitis [Recovered/Resolved]
  - Hyperlipidaemia [Unknown]
